FAERS Safety Report 6649796-9 (Version None)
Quarter: 2010Q1

REPORT INFORMATION
  Report Type: 
  Country: None (occurrence: None)
  Receive Date: 20100322
  Receipt Date: 20100305
  Transmission Date: 20100710
  Serious: Yes (Death, Hospitalization)
  Sender: FDA-Public Use
  Company Number: MC201000031

PATIENT
  Age: 80 Year
  Sex: Female

DRUGS (1)
  1. CLEVIPREX [Suspect]
     Indication: BLOOD PRESSURE MANAGEMENT
     Dosage: 25 MG IV TITRATE TO SBP 130-160, BAG #2 FOREARM PROXIMAL RT, INTRAVENOUS
     Route: 042
     Dates: start: 20100110, end: 20100110

REACTIONS (19)
  - AGITATION [None]
  - ATRIAL FIBRILLATION [None]
  - BLOOD PRESSURE SYSTOLIC INCREASED [None]
  - COLITIS [None]
  - DIASTOLIC DYSFUNCTION [None]
  - DYSPNOEA [None]
  - GASTRIC ULCER [None]
  - GASTROINTESTINAL HAEMORRHAGE [None]
  - GENERALISED OEDEMA [None]
  - HYPOALBUMINAEMIA [None]
  - HYPOTENSION [None]
  - INJECTION SITE EXTRAVASATION [None]
  - MALAISE [None]
  - OEDEMA PERIPHERAL [None]
  - PHLEBITIS [None]
  - POOR QUALITY DRUG ADMINISTERED [None]
  - PRODUCT QUALITY ISSUE [None]
  - RESTLESSNESS [None]
  - THROMBOPHLEBITIS [None]
